FAERS Safety Report 6660681-9 (Version None)
Quarter: 2010Q1

REPORT INFORMATION
  Report Type: 
  Country: None (occurrence: None)
  Receive Date: 20100331
  Receipt Date: 20100318
  Transmission Date: 20100710
  Serious: Yes (Hospitalization, Other)
  Sender: FDA-Public Use
  Company Number: ES-ELI_LILLY_AND_COMPANY-ES201003005702

PATIENT
  Sex: Female
  Weight: 73 kg

DRUGS (6)
  1. FORTEO [Suspect]
     Indication: OSTEOPOROSIS
     Dosage: 20 UG, DAILY (1/D)
     Route: 058
     Dates: start: 20091126, end: 20100201
  2. FORTEO [Suspect]
     Dosage: 20 UG, DAILY (1/D)
     Route: 058
     Dates: start: 20100101
  3. REMINYL [Concomitant]
     Indication: AMNESIA
     Dosage: 24 MG, DAILY (1/D)
     Route: 048
     Dates: start: 20080318
  4. SINTROM [Concomitant]
     Indication: ARRHYTHMIA
     Dosage: MONDAY AND THURSDAY 3/4, REST OF DAYS 1/2, OTHER
     Route: 048
  5. DOBUPAL [Concomitant]
     Indication: DEPRESSION
     Dosage: 150 MG, DAILY (1/D)
     Route: 048
     Dates: start: 20090318
  6. DIGOXIN [Concomitant]
     Indication: ARRHYTHMIA
     Dosage: 0.25 MG, DAILY (1/D)
     Route: 048

REACTIONS (4)
  - IMMUNODEFICIENCY [None]
  - INTENTIONAL DRUG MISUSE [None]
  - MEDICATION ERROR [None]
  - PULMONARY OEDEMA [None]
